FAERS Safety Report 8155231-4 (Version None)
Quarter: 2012Q1

REPORT INFORMATION
  Report Type: 
  Country: None (occurrence: None)
  Receive Date: 20120222
  Receipt Date: 20120213
  Transmission Date: 20120608
  Serious: Yes (Hospitalization)
  Sender: FDA-Public Use
  Company Number: US-BIOGENIDEC-2011BI043600

PATIENT
  Age: 47 Year
  Sex: Female

DRUGS (2)
  1. AVONEX [Suspect]
     Indication: MULTIPLE SCLEROSIS
     Route: 030
     Dates: start: 19990303, end: 20071111
  2. AVONEX [Suspect]
     Route: 030
     Dates: start: 20080507

REACTIONS (4)
  - LOWER RESPIRATORY TRACT INFECTION BACTERIAL [None]
  - ASTHMA [None]
  - PNEUMONIA PRIMARY ATYPICAL [None]
  - DEPRESSION [None]
